FAERS Safety Report 4363747-1 (Version None)
Quarter: 2004Q2

REPORT INFORMATION
  Report Type: 
  Country: None (occurrence: None)
  Receive Date: 20040520
  Receipt Date: 20040520
  Transmission Date: 20050107
  Serious: Yes (Other)
  Sender: FDA-Public Use
  Company Number: None

PATIENT
  Age: 62 Year
  Sex: Female

DRUGS (5)
  1. COUMADIN [Suspect]
     Indication: DEEP VEIN THROMBOSIS
     Dosage: 12.5 MG ORAL
     Route: 048
     Dates: start: 20040406, end: 20040430
  2. PROZAC [Concomitant]
  3. PROVACHOL [Concomitant]
  4. SYNTHROID [Concomitant]
  5. TRIAM/HCT [Concomitant]

REACTIONS (1)
  - DRUG INEFFECTIVE [None]
